FAERS Safety Report 6038994-3 (Version None)
Quarter: 2009Q1

REPORT INFORMATION
  Report Type: 
  Country: None (occurrence: None)
  Receive Date: 20090115
  Receipt Date: 20090107
  Transmission Date: 20090719
  Serious: Yes (Hospitalization)
  Sender: FDA-Public Use
  Company Number: US-GENENTECH-275208

PATIENT
  Age: 60 Year
  Sex: Female
  Weight: 63.6 kg

DRUGS (2)
  1. AVASTIN [Suspect]
     Indication: COLON CANCER
     Dosage: 5 MG/M2, Q14D
     Dates: start: 20080912, end: 20080926
  2. OXALIPLATIN [Suspect]
     Indication: COLON CANCER
     Dosage: 85 MG/M2, Q14D
     Dates: start: 20080912, end: 20080926

REACTIONS (1)
  - ILEITIS [None]
